FAERS Safety Report 25393598 (Version 2)
Quarter: 2025Q2

REPORT INFORMATION
  Report Type: Report from Study
  Country: JP (occurrence: JP)
  Receive Date: 20250604
  Receipt Date: 20250605
  Transmission Date: 20250717
  Serious: Yes (Hospitalization)
  Sender: ABBVIE
  Company Number: JP-ABBVIE-6210330

PATIENT
  Age: 73 Year
  Sex: Female

DRUGS (1)
  1. VYALEV [Suspect]
     Active Substance: FOSCARBIDOPA\FOSLEVODOPA
     Indication: Parkinson^s disease
     Route: 058
     Dates: start: 20250313

REACTIONS (9)
  - Mental disorder [Unknown]
  - Infusion site induration [Not Recovered/Not Resolved]
  - Infusion site discharge [Recovered/Resolved]
  - Infusion site reaction [Recovering/Resolving]
  - Infusion site erosion [Recovering/Resolving]
  - Infusion site discharge [Recovered/Resolved]
  - Infusion site discharge [Recovering/Resolving]
  - Insomnia [Unknown]
  - Persecutory delusion [Unknown]

NARRATIVE: CASE EVENT DATE: 20250101
